FAERS Safety Report 25330819 (Version 2)
Quarter: 2025Q2

REPORT INFORMATION
  Report Type: Report from Study
  Country: CA (occurrence: CA)
  Receive Date: 20250519
  Receipt Date: 20250523
  Transmission Date: 20250716
  Serious: Yes (Other)
  Sender: OTSUKA
  Company Number: CA-MMM-Otsuka-MLSATJ2U

PATIENT
  Sex: Female

DRUGS (1)
  1. ARIPIPRAZOLE [Suspect]
     Active Substance: ARIPIPRAZOLE
     Indication: Product used for unknown indication
     Route: 030

REACTIONS (5)
  - Hallucination, visual [Unknown]
  - Hallucination, auditory [Unknown]
  - Infected cyst [Recovered/Resolved with Sequelae]
  - Drug effect less than expected [Unknown]
  - Inappropriate schedule of product administration [Recovered/Resolved with Sequelae]
